FAERS Safety Report 6255110-3 (Version None)
Quarter: 2009Q3

REPORT INFORMATION
  Report Type: 
  Country: None (occurrence: None)
  Receive Date: 20090702
  Receipt Date: 20090626
  Transmission Date: 20100115
  Serious: Yes (Other)
  Sender: FDA-Public Use
  Company Number: US-AMGEN-US353420

PATIENT
  Sex: Male

DRUGS (4)
  1. NPLATE [Suspect]
     Indication: IDIOPATHIC THROMBOCYTOPENIC PURPURA
  2. IMMUNOGLOBULINS [Concomitant]
  3. SOLU-MEDROL [Concomitant]
  4. VALTREX [Concomitant]

REACTIONS (1)
  - THERAPEUTIC RESPONSE DECREASED [None]
